FAERS Safety Report 5682365-6 (Version None)
Quarter: 2008Q1

REPORT INFORMATION
  Report Type: 
  Country: None (occurrence: None)
  Receive Date: 20080327
  Receipt Date: 20080319
  Transmission Date: 20080703
  Serious: Yes (Life-Threatening)
  Sender: FDA-Public Use
  Company Number: GB-JNJFOC-20080304863

PATIENT
  Age: 54 Year
  Sex: Female
  Weight: 57 kg

DRUGS (9)
  1. REMICADE [Suspect]
     Indication: CROHN'S DISEASE
     Route: 042
  2. ALENDRONIC ACID [Concomitant]
     Indication: OSTEOPOROSIS
     Route: 048
  3. BUSCOPAN [Concomitant]
     Indication: CROHN'S DISEASE
     Route: 048
  4. CALCIUM CHEWABLE [Concomitant]
     Indication: OSTEOPOROSIS
     Dosage: DOSE: 1DF
     Route: 048
  5. DIHYDROCODEINE [Concomitant]
     Indication: ARTHRITIS
     Route: 048
  6. DOSULEPIN [Concomitant]
  7. FOLIC ACID [Concomitant]
     Route: 048
  8. OMEPRAZOLE [Concomitant]
     Indication: DYSPEPSIA
     Route: 048
  9. VITAMIN B [Concomitant]

REACTIONS (5)
  - CHEST DISCOMFORT [None]
  - FLUSHING [None]
  - HEADACHE [None]
  - NAUSEA [None]
  - PALLOR [None]
